FAERS Safety Report 17162887 (Version 1)
Quarter: 2019Q4

REPORT INFORMATION
  Report Type: Spontaneous
  Country: US (occurrence: US)
  Receive Date: 20191216
  Receipt Date: 20191216
  Transmission Date: 20200122
  Serious: No
  Sender: FDA-Public Use
  Company Number: None

PATIENT
  Age: 71 Year
  Sex: Female
  Weight: 83.2 kg

DRUGS (12)
  1. FLUOROMETHOLONE 0.1% [Concomitant]
     Active Substance: FLUOROMETHOLONE
  2. CAPECITABINE. [Suspect]
     Active Substance: CAPECITABINE
     Indication: COLON CANCER
     Route: 048
     Dates: start: 20191121, end: 20191202
  3. CAPECITABINE. [Suspect]
     Active Substance: CAPECITABINE
     Indication: METASTASES TO LIVER
     Route: 048
     Dates: start: 20191121, end: 20191202
  4. HYDROCHLOROTHIAZIDE 25MG [Concomitant]
     Active Substance: HYDROCHLOROTHIAZIDE
  5. POTASSIUM20MEQ [Concomitant]
  6. GABAPENTIN 300MG [Concomitant]
     Active Substance: GABAPENTIN
  7. ONDANSETRON 8MG [Concomitant]
     Active Substance: ONDANSETRON
  8. PRAVASTATIN. [Concomitant]
     Active Substance: PRAVASTATIN
  9. MAG-OXIDE 200MG [Concomitant]
  10. TRIAMCINOLONE 0.1% [Concomitant]
     Active Substance: TRIAMCINOLONE
  11. AMLODIPINE10MG [Concomitant]
  12. LOSARTAN100MG [Concomitant]

REACTIONS (1)
  - Disease progression [None]

NARRATIVE: CASE EVENT DATE: 20191202
